FAERS Safety Report 7047448-7 (Version None)
Quarter: 2010Q4

REPORT INFORMATION
  Report Type: 
  Country: None (occurrence: None)
  Receive Date: 20101015
  Receipt Date: 20101007
  Transmission Date: 20110411
  Serious: Yes (Hospitalization)
  Sender: FDA-Public Use
  Company Number: US-JNJFOC-20101002180

PATIENT
  Sex: Female

DRUGS (3)
  1. INVEGA SUSTENNA [Suspect]
     Indication: SCHIZOPHRENIA
     Route: 030
  2. INVEGA [Concomitant]
     Indication: SCHIZOPHRENIA
     Dosage: ^6-12 MG TAB EACH DAY ORAL^
     Route: 048
  3. RISPERDAL [Concomitant]
     Indication: SCHIZOPHRENIA
     Dosage: ^1 MG 2 1 MG TABS EACH DAY^ INITIATED SEP-2010, STOPPED IN ^2010^.

REACTIONS (1)
  - PSYCHOTIC DISORDER [None]
